FAERS Safety Report 10003626 (Version 1)
Quarter: 2014Q1

REPORT INFORMATION
  Report Type: Spontaneous
  Country: FR (occurrence: FR)
  Receive Date: 20140312
  Receipt Date: 20140312
  Transmission Date: 20141002
  Serious: Yes (Hospitalization, Other)
  Sender: FDA-Public Use
  Company Number: FR-PFIZER INC-2014070855

PATIENT
  Age: 90 Year
  Sex: Female

DRUGS (2)
  1. METHYLPREDNISOLONE ACETATE [Suspect]
     Dosage: 60 MG, SINGLE
     Route: 040
  2. METHYLPREDNISOLONE ACETATE [Suspect]
     Dosage: 40 MG, DAILY
     Route: 040

REACTIONS (2)
  - Diabetes mellitus [Unknown]
  - Endocarditis staphylococcal [Recovered/Resolved]
